FAERS Safety Report 10916395 (Version 3)
Quarter: 2015Q2

REPORT INFORMATION
  Report Type: Spontaneous
  Country: ES (occurrence: ES)
  Receive Date: 20150316
  Receipt Date: 20150410
  Transmission Date: 20150821
  Serious: Yes (Other)
  Sender: FDA-Public Use
  Company Number: ES-PFIZER INC-2015093107

PATIENT
  Age: 62 Year
  Sex: Female

DRUGS (4)
  1. PAROXETINE [Concomitant]
     Active Substance: PAROXETINE\PAROXETINE HYDROCHLORIDE
     Dosage: 20 MG, 1X/DAY
     Route: 048
  2. SIMVASTATINE ALTER [Concomitant]
     Indication: HYPERLIPIDAEMIA
     Dosage: 5 MG, 1X/DAY
     Route: 048
  3. CHAMPIX [Suspect]
     Active Substance: VARENICLINE TARTRATE
     Indication: TOBACCO ABUSE
     Dosage: 1 MG, 1X/DAY
     Route: 048
     Dates: start: 20141015, end: 20141215
  4. ORFIDAL [Concomitant]
     Active Substance: LORAZEPAM
     Indication: ANXIETY
     Dosage: 1 MG, 1X/DAY
     Route: 048

REACTIONS (1)
  - Myasthenic syndrome [Recovered/Resolved]

NARRATIVE: CASE EVENT DATE: 201410
